FAERS Safety Report 14281570 (Version 1)
Quarter: 2017Q4

REPORT INFORMATION
  Report Type: Other
  Country: NL (occurrence: NL)
  Receive Date: 20171213
  Receipt Date: 20171213
  Transmission Date: 20180321
  Serious: Yes (Other)
  Sender: FDA-Public Use
  Company Number: NL-HIKMA PHARMACEUTICALS CO. LTD-2017NL016937

PATIENT

DRUGS (2)
  1. INFLIXIMAB [Suspect]
     Active Substance: INFLIXIMAB
     Indication: INFLAMMATORY BOWEL DISEASE
     Dosage: UNK
     Route: 065
  2. THIOSIX [Suspect]
     Active Substance: THIOGUANINE ANHYDROUS
     Indication: INFLAMMATORY BOWEL DISEASE
     Dosage: 20 MG, DAILY
     Route: 065
     Dates: start: 20160712

REACTIONS (11)
  - Eczema [Recovered/Resolved]
  - Toxic skin eruption [Recovered/Resolved]
  - Pubic pain [Recovered/Resolved]
  - Wound secretion [Recovered/Resolved]
  - Erythema [Recovered/Resolved]
  - Fatigue [Recovered/Resolved]
  - Genital erythema [Recovered/Resolved]
  - Swelling [Recovered/Resolved]
  - Eye inflammation [Recovered/Resolved]
  - Skin exfoliation [Recovered/Resolved]
  - Inflammation [Recovered/Resolved]

NARRATIVE: CASE EVENT DATE: 20170308
